APPROVED DRUG PRODUCT: NEOSTIGMINE METHYLSULFATE
Active Ingredient: NEOSTIGMINE METHYLSULFATE
Strength: 5MG/10ML (0.5MG/ML)
Dosage Form/Route: SOLUTION;INTRAVENOUS
Application: A207042 | Product #001 | TE Code: AP
Applicant: HIKMA PHARMACEUTICALS USA INC
Approved: Dec 28, 2015 | RLD: No | RS: Yes | Type: RX